FAERS Safety Report 21197959 (Version 2)
Quarter: 2022Q3

REPORT INFORMATION
  Report Type: Spontaneous
  Country: US (occurrence: US)
  Receive Date: 20220810
  Receipt Date: 20220921
  Transmission Date: 20221026
  Serious: No
  Sender: FDA-Public Use
  Company Number: US-JNJFOC-20220809538

PATIENT
  Age: 55 Year
  Sex: Male
  Weight: 104.42 kg

DRUGS (1)
  1. SIMPONI [Suspect]
     Active Substance: GOLIMUMAB
     Indication: Psoriatic arthropathy
     Dosage: 50.00 MG /0.50 ML
     Route: 058

REACTIONS (4)
  - Product storage error [Unknown]
  - Injection site mass [Unknown]
  - Gait inability [Unknown]
  - Product dose omission issue [Unknown]

NARRATIVE: CASE EVENT DATE: 20220803
